FAERS Safety Report 11966104 (Version 4)
Quarter: 2017Q1

REPORT INFORMATION
  Report Type: Spontaneous
  Country: US (occurrence: US)
  Receive Date: 20160127
  Receipt Date: 20170215
  Transmission Date: 20170428
  Serious: Yes (Other)
  Sender: FDA-Public Use
  Company Number: US-ASTELLAS-2016US002785

PATIENT
  Age: 79 Year
  Sex: Male

DRUGS (2)
  1. XTANDI [Suspect]
     Active Substance: ENZALUTAMIDE
     Indication: PROSTATE CANCER
     Route: 065
  2. XTANDI [Suspect]
     Active Substance: ENZALUTAMIDE
     Route: 048
     Dates: start: 20161016

REACTIONS (16)
  - Myalgia [Unknown]
  - Vomiting [Unknown]
  - Decreased appetite [Not Recovered/Not Resolved]
  - Memory impairment [Unknown]
  - Skin irritation [Not Recovered/Not Resolved]
  - Influenza like illness [Unknown]
  - Pain [Unknown]
  - Musculoskeletal stiffness [Unknown]
  - Diarrhoea [Unknown]
  - Nipple disorder [Unknown]
  - Weight decreased [Unknown]
  - Dehydration [Unknown]
  - Asthenia [Not Recovered/Not Resolved]
  - Hot flush [Unknown]
  - Gynaecomastia [Unknown]
  - Prostate ablation [Unknown]

NARRATIVE: CASE EVENT DATE: 201512
